FAERS Safety Report 10445508 (Version 2)
Quarter: 2014Q3

REPORT INFORMATION
  Report Type: Spontaneous
  Country: JP (occurrence: JP)
  Receive Date: 20140910
  Receipt Date: 20140910
  Transmission Date: 20150326
  Serious: Yes (Death, Other)
  Sender: FDA-Public Use
  Company Number: JP-SA-2014SA065483

PATIENT
  Age: 66 Year
  Sex: Female
  Weight: 62 kg

DRUGS (35)
  1. CAMPTO [Suspect]
     Active Substance: IRINOTECAN
     Indication: PANCREATIC CARCINOMA
     Route: 041
     Dates: start: 20140117, end: 20140117
  2. SOLDOL E [Concomitant]
     Dates: start: 20140117, end: 20140119
  3. PRIMPERAN [Concomitant]
     Active Substance: METOCLOPRAMIDE HYDROCHLORIDE
     Dates: start: 20140117, end: 20140129
  4. ROPION [Concomitant]
     Active Substance: FLURBIPROFEN AXETIL
     Dates: start: 20140126, end: 20140127
  5. PANTETHINE [Concomitant]
     Active Substance: PANTETHINE
     Dates: start: 20140117, end: 20140119
  6. PARIET [Concomitant]
     Active Substance: RABEPRAZOLE SODIUM
     Dates: start: 20140120
  7. DALACIN-S [Concomitant]
     Active Substance: CLINDAMYCIN\CLINDAMYCIN PHOSPHATE
     Dates: start: 20140130, end: 20140201
  8. LEVOFOLINATE [Concomitant]
     Active Substance: LEVOLEUCOVORIN CALCIUM
     Route: 042
     Dates: start: 20140117, end: 20140117
  9. DEPAS [Concomitant]
     Active Substance: ETIZOLAM
     Dates: start: 20140117, end: 20140119
  10. NOVAMIN [Concomitant]
     Active Substance: PROCHLORPERAZINE MALEATE
     Dates: start: 20140123, end: 20140124
  11. SOLANAX [Concomitant]
     Active Substance: ALPRAZOLAM
     Dates: start: 20140123, end: 20140123
  12. ALOXI [Concomitant]
     Active Substance: PALONOSETRON HYDROCHLORIDE
     Dates: start: 20140117, end: 20140117
  13. NOVAMIN [Concomitant]
     Active Substance: PROCHLORPERAZINE MALEATE
     Dates: start: 20140117, end: 20140125
  14. BUSCOPAN [Concomitant]
     Active Substance: BUTYLSCOPOLAMINE BROMIDE
     Dates: start: 20140117, end: 20140117
  15. HANP [Concomitant]
     Active Substance: CARPERITIDE
     Dates: start: 20140129, end: 20140130
  16. ELPLAT [Suspect]
     Active Substance: OXALIPLATIN
     Indication: PANCREATIC CARCINOMA
     Route: 041
     Dates: start: 20140117, end: 20140117
  17. 5-FU [Suspect]
     Active Substance: FLUOROURACIL
     Indication: PANCREATIC CARCINOMA
     Route: 040
     Dates: start: 20140117, end: 20140117
  18. PRIMPERAN [Concomitant]
     Active Substance: METOCLOPRAMIDE HYDROCHLORIDE
     Dates: start: 20140120, end: 20140125
  19. ATARAX-P [Concomitant]
     Active Substance: HYDROXYZINE HYDROCHLORIDE
     Dates: start: 20140125, end: 20140125
  20. SANDOSTATIN ^SANDOZ^ [Concomitant]
     Dates: start: 20140127, end: 20140201
  21. MIRACLID [Concomitant]
     Active Substance: ULINASTATIN
     Dates: start: 20140129, end: 20140131
  22. EMEND [Concomitant]
     Active Substance: APREPITANT
     Dates: start: 20140117, end: 20140119
  23. DEXART [Concomitant]
     Active Substance: DEXAMETHASONE SODIUM PHOSPHATE
     Dates: start: 20140117, end: 20140125
  24. MAGLAX [Concomitant]
     Active Substance: MAGNESIUM OXIDE
     Dates: start: 20140118
  25. GRAN [Concomitant]
     Active Substance: FILGRASTIM
     Dates: start: 20140125, end: 20140128
  26. NOVOLIN R [Concomitant]
     Active Substance: INSULIN HUMAN
     Dates: start: 20140117, end: 20140119
  27. MYSLEE [Concomitant]
     Active Substance: ZOLPIDEM TARTRATE
     Dates: start: 20140125, end: 20140125
  28. 5-FU [Suspect]
     Active Substance: FLUOROURACIL
     Indication: PANCREATIC CARCINOMA
     Route: 041
     Dates: start: 20140117, end: 20140117
  29. URSODEOXYCHOLIC ACID [Concomitant]
     Active Substance: URSODIOL
     Dates: start: 20140117, end: 20140119
  30. LOXOPROFEN [Concomitant]
     Active Substance: LOXOPROFEN
     Dates: start: 20140119, end: 20140124
  31. TELEMINSOFT [Concomitant]
     Dates: start: 20140121, end: 20140121
  32. CEFEPIME DIHYROCHLORIDE [Concomitant]
     Dates: start: 20140125, end: 20140127
  33. SANGLOPOR [Concomitant]
     Active Substance: HUMAN IMMUNOGLOBULIN G
     Dates: start: 20140126, end: 20140128
  34. PANTOL [Concomitant]
     Active Substance: DEXPANTHENOL
     Dates: start: 20140127, end: 20140201
  35. RED BLOOD CELLS, CONCENTRATED [Concomitant]
     Active Substance: HUMAN RED BLOOD CELL
     Dates: start: 20140127, end: 20140127

REACTIONS (5)
  - Pneumonia aspiration [Fatal]
  - Pancytopenia [Fatal]
  - Diarrhoea [Recovered/Resolved]
  - Ileus [Recovering/Resolving]
  - Febrile neutropenia [Recovered/Resolved]

NARRATIVE: CASE EVENT DATE: 20140117
